FAERS Safety Report 7544853-7 (Version None)
Quarter: 2011Q2

REPORT INFORMATION
  Report Type: 
  Country: None (occurrence: None)
  Receive Date: 20110614
  Receipt Date: 20090928
  Transmission Date: 20111010
  Serious: Yes (Other)
  Sender: FDA-Public Use
  Company Number: US-BAYER-2011-006404

PATIENT
  Age: 69 Year
  Sex: Male
  Weight: 116 kg

DRUGS (12)
  1. METOLAZONE [Concomitant]
     Dosage: 2.5MG, ONE DAILY FOR 5 DAYS
  2. TRASYLOL [Suspect]
     Indication: TRICUSPID VALVE REPLACEMENT
  3. ALDACTONE [Concomitant]
     Dosage: 25 MG, QD
     Route: 048
  4. TRASYLOL [Suspect]
     Indication: CORONARY ARTERY BYPASS
     Dosage: UNK
     Route: 042
     Dates: start: 20060111, end: 20060111
  5. ATENOLOL [Concomitant]
     Dosage: 25 MG, QD
     Route: 048
  6. ANCEF [Concomitant]
     Dosage: 2 G, UNK
     Dates: start: 20060111, end: 20060111
  7. VALSARTAN [Concomitant]
     Dosage: 40MG TAB, 1/2 TAB DAILY
     Route: 048
  8. LASIX [Concomitant]
     Dosage: 80 MG, TID
     Route: 048
  9. LEVOPHED [Concomitant]
     Dosage: DRIP
     Dates: start: 20060111
  10. ALLOPURINOL [Concomitant]
     Dosage: 300 MG Q DAY
     Route: 048
  11. TRASYLOL [Suspect]
     Indication: MITRAL VALVE REPLACEMENT
  12. HYDROCORTISONE [Concomitant]
     Dosage: TOPICAL TO LEG

REACTIONS (11)
  - FEAR [None]
  - STRESS [None]
  - PAIN [None]
  - RENAL INJURY [None]
  - ANXIETY [None]
  - RENAL FAILURE [None]
  - EMOTIONAL DISTRESS [None]
  - ANHEDONIA [None]
  - INJURY [None]
  - RENAL IMPAIRMENT [None]
  - UNEVALUABLE EVENT [None]
